FAERS Safety Report 7755191-1 (Version None)
Quarter: 2011Q3

REPORT INFORMATION
  Report Type: 
  Country: None (occurrence: None)
  Receive Date: 20110916
  Receipt Date: 20110622
  Transmission Date: 20111222
  Serious: No
  Sender: FDA-Public Use
  Company Number: US-GLAXOSMITHKLINE-A0933317A

PATIENT
  Age: 73 Year
  Sex: Male

DRUGS (5)
  1. OMEPRAZOLE [Concomitant]
  2. ASPIRIN [Concomitant]
  3. PROMACTA [Suspect]
     Indication: THROMBOCYTOPENIA
     Dosage: 50MG PER DAY
     Route: 048
  4. METOPROLOL TARTRATE [Concomitant]
  5. LIPITOR [Concomitant]

REACTIONS (5)
  - VOMITING [None]
  - NAUSEA [None]
  - HEADACHE [None]
  - DECREASED APPETITE [None]
  - MYALGIA [None]
